FAERS Safety Report 15090225 (Version 1)
Quarter: 2018Q2

REPORT INFORMATION
  Report Type: Spontaneous
  Country: AR (occurrence: AR)
  Receive Date: 20180629
  Receipt Date: 20180629
  Transmission Date: 20180711
  Serious: Yes (Other)
  Sender: FDA-Public Use
  Company Number: AR-JNJFOC-20180630296

PATIENT
  Age: 41 Year
  Sex: Female

DRUGS (3)
  1. LEVOTHYROXINE. [Concomitant]
     Active Substance: LEVOTHYROXINE
     Indication: PRIMARY HYPOTHYROIDISM
     Route: 042
  2. HALOPERIDOL. [Suspect]
     Active Substance: HALOPERIDOL
     Indication: ALTERED STATE OF CONSCIOUSNESS
     Route: 042
  3. FENOFIBRATE. [Concomitant]
     Active Substance: FENOFIBRATE
     Indication: DYSLIPIDAEMIA
     Route: 065

REACTIONS (4)
  - Off label use [Unknown]
  - Acute generalised exanthematous pustulosis [Recovered/Resolved]
  - Product use in unapproved indication [Unknown]
  - Incorrect route of drug administration [Unknown]
